FAERS Safety Report 17717526 (Version 1)
Quarter: 2020Q2

REPORT INFORMATION
  Report Type: Spontaneous
  Country: AT (occurrence: AT)
  Receive Date: 20200428
  Receipt Date: 20200428
  Transmission Date: 20200714
  Serious: Yes (Other)
  Sender: FDA-Public Use
  Company Number: AT-PFIZER INC-2020165054

PATIENT
  Age: 49 Year
  Sex: Male

DRUGS (1)
  1. METHOTREXATE SODIUM. [Suspect]
     Active Substance: METHOTREXATE SODIUM
     Dosage: 15 MG, WEEKLY
     Route: 058

REACTIONS (13)
  - Transaminases increased [Unknown]
  - Enthesopathy [Unknown]
  - Off label use [Unknown]
  - Psoriatic arthropathy [Unknown]
  - Arthralgia [Unknown]
  - Product use issue [Unknown]
  - Dactylitis [Unknown]
  - Joint swelling [Recovering/Resolving]
  - Skin lesion [Unknown]
  - Nausea [Unknown]
  - HLA marker study positive [Unknown]
  - Psoriasis [Unknown]
  - Pruritus [Unknown]

NARRATIVE: CASE EVENT DATE: 201701
